FAERS Safety Report 25802169 (Version 1)
Quarter: 2025Q3

REPORT INFORMATION
  Report Type: Spontaneous
  Country: JP (occurrence: JP)
  Receive Date: 20250915
  Receipt Date: 20250915
  Transmission Date: 20251020
  Serious: Yes (Life-Threatening, Hospitalization)
  Sender: ACCORD
  Company Number: JP-MLMSERVICE-20250901-PI628784-00270-3

PATIENT
  Age: 83 Year
  Sex: Female

DRUGS (6)
  1. METHOTREXATE [Suspect]
     Active Substance: METHOTREXATE
     Indication: Rheumatoid arthritis
  2. TACROLIMUS [Suspect]
     Active Substance: TACROLIMUS
     Indication: Rheumatoid arthritis
  3. METHYLPREDNISOLONE [Suspect]
     Active Substance: METHYLPREDNISOLONE
     Indication: Liver injury
  4. TENOFOVIR DISOPROXIL [Concomitant]
     Active Substance: TENOFOVIR DISOPROXIL
     Indication: Hepatitis B reactivation
  5. EDOXABAN [Concomitant]
     Active Substance: EDOXABAN
     Indication: Pulmonary embolism
  6. METHYLPREDNISOLONE [Suspect]
     Active Substance: METHYLPREDNISOLONE
     Indication: Hepatitis B reactivation

REACTIONS (10)
  - Diverticular perforation [Unknown]
  - Cytomegalovirus infection [Unknown]
  - Hypovolaemic shock [Recovering/Resolving]
  - Septic shock [Recovering/Resolving]
  - Rectal ulcer haemorrhage [Recovering/Resolving]
  - Enterobacter infection [Unknown]
  - Pleural effusion [Unknown]
  - Ascites [Unknown]
  - Hyperbilirubinaemia [Unknown]
  - Anaemia [Unknown]
